FAERS Safety Report 8348538 (Version 2)
Quarter: 2013Q4

REPORT INFORMATION
  Report Type: Spontaneous
  Country: FR (occurrence: FR)
  Receive Date: 20120123
  Receipt Date: 20131110
  Transmission Date: 20140711
  Serious: Yes (Other)
  Sender: FDA-Public Use
  Company Number: FR-SANOFI-AVENTIS-2012SA002478

PATIENT
  Age: 74 Year
  Sex: Male

DRUGS (15)
  1. PLAVIX [Suspect]
     Indication: ATHEROSCLEROSIS PROPHYLAXIS
     Route: 048
  2. CLOPIDOGREL [Interacting]
     Indication: ATHEROSCLEROSIS PROPHYLAXIS
     Route: 065
  3. MODIODAL [Interacting]
     Indication: PRODUCT USED FOR UNKNOWN INDICATION
     Route: 048
  4. SIMVASTATIN [Concomitant]
  5. KARDEGIC [Concomitant]
  6. LODOZ [Concomitant]
  7. LOPERAMIDE [Concomitant]
  8. AERIUS [Concomitant]
  9. ZOXAN [Concomitant]
  10. SIFROL [Concomitant]
  11. DAFALGAN [Concomitant]
  12. COVERSYL [Concomitant]
  13. PERMIXON [Concomitant]
  14. ADARTREL [Concomitant]
  15. RABEPRAZOLE [Concomitant]

REACTIONS (3)
  - Drug interaction [Unknown]
  - Drug ineffective [Unknown]
  - Malabsorption [Unknown]
